FAERS Safety Report 4633585-0 (Version None)
Quarter: 2005Q2

REPORT INFORMATION
  Report Type: 
  Country: None (occurrence: None)
  Receive Date: 20050412
  Receipt Date: 20050412
  Transmission Date: 20051028
  Serious: Yes (Hospitalization)
  Sender: FDA-Public Use
  Company Number: None

PATIENT
  Age: 56 Year
  Sex: Female
  Weight: 51.7 kg

DRUGS (1)
  1. WARFARIN [Suspect]

REACTIONS (3)
  - ANAEMIA [None]
  - HAEMATURIA [None]
  - RECTAL HAEMORRHAGE [None]
